FAERS Safety Report 6531375-5 (Version None)
Quarter: 2010Q1

REPORT INFORMATION
  Report Type: 
  Country: None (occurrence: None)
  Receive Date: 20100108
  Receipt Date: 20091030
  Transmission Date: 20100710
  Serious: No
  Sender: FDA-Public Use
  Company Number: A0811606A

PATIENT
  Age: 53 Year
  Sex: Female

DRUGS (9)
  1. TYKERB [Suspect]
     Indication: BREAST CANCER
     Dosage: 2TAB PER DAY
     Route: 048
     Dates: start: 20091005
  2. PAXIL [Concomitant]
  3. ZOMETA [Concomitant]
  4. CALCIUM [Concomitant]
  5. VITAMINS [Concomitant]
  6. MORPHINE [Concomitant]
  7. THYROID MEDICATION [Concomitant]
  8. ZOFRAN [Concomitant]
  9. PROMETHAZINE [Concomitant]

REACTIONS (1)
  - NAUSEA [None]
